FAERS Safety Report 7867844-5 (Version None)
Quarter: 2011Q4

REPORT INFORMATION
  Report Type: 
  Country: None (occurrence: None)
  Receive Date: 20111028
  Receipt Date: 20111020
  Transmission Date: 20120403
  Serious: Yes (Hospitalization)
  Sender: FDA-Public Use
  Company Number: US-CELGENEUS-163-21880-11091286

PATIENT
  Sex: Female
  Weight: 55.388 kg

DRUGS (10)
  1. MULTI-VITAMINS [Concomitant]
     Dosage: 1
     Route: 048
     Dates: start: 20110402
  2. ALEVE [Concomitant]
     Route: 065
  3. REVLIMID [Suspect]
     Indication: MYELODYSPLASTIC SYNDROME
     Dosage: 5 MILLIGRAM
     Route: 048
     Dates: start: 20110806, end: 20110920
  4. REVLIMID [Suspect]
     Dosage: 5 MILLIGRAM
     Route: 048
     Dates: start: 20111021
  5. COLACE [Concomitant]
     Dosage: 100 MILLIGRAM
     Route: 048
     Dates: start: 20110402
  6. KLONOPIN [Concomitant]
     Dosage: .5 MILLIGRAM
     Route: 065
  7. ASPIRIN [Concomitant]
     Dosage: 81 MILLIGRAM
     Route: 065
  8. VITAMIN B-12 [Concomitant]
     Dosage: 1000 MICROGRAM
     Route: 030
     Dates: start: 20110802
  9. OS-CAL + D [Concomitant]
     Dosage: 500
     Route: 065
     Dates: start: 20110802
  10. MOM [Concomitant]
     Dosage: 15CC
     Route: 065
     Dates: start: 20110802

REACTIONS (5)
  - CONFUSIONAL STATE [None]
  - ASTHENIA [None]
  - DYSARTHRIA [None]
  - BLOOD PRESSURE DECREASED [None]
  - HALLUCINATION [None]
